FAERS Safety Report 20084727 (Version 1)
Quarter: 2021Q4

REPORT INFORMATION
  Report Type: Spontaneous
  Country: AU (occurrence: AU)
  Receive Date: 20211118
  Receipt Date: 20211118
  Transmission Date: 20220303
  Serious: Yes (Hospitalization, Other)
  Sender: FDA-Public Use
  Company Number: AU-ABBVIE-21K-008-4163354-00

PATIENT
  Age: 58 Year
  Sex: Male

DRUGS (13)
  1. VALPROIC ACID [Suspect]
     Active Substance: VALPROIC ACID
     Indication: Product used for unknown indication
     Route: 065
  2. CLOZAPINE [Suspect]
     Active Substance: CLOZAPINE
     Indication: Schizophrenia
     Route: 048
     Dates: start: 19940602
  3. CLOZAPINE [Suspect]
     Active Substance: CLOZAPINE
     Indication: Delusion
     Route: 048
  4. CLOZAPINE [Suspect]
     Active Substance: CLOZAPINE
     Route: 048
  5. AMLODIPINE [Concomitant]
     Active Substance: AMLODIPINE BESYLATE
     Indication: Product used for unknown indication
  6. CANDESARTAN [Concomitant]
     Active Substance: CANDESARTAN
     Indication: Product used for unknown indication
  7. CHOLECALCIFEROL [Concomitant]
     Active Substance: CHOLECALCIFEROL
     Indication: Product used for unknown indication
  8. DOCUSATE SODIUM\SENNOSIDES A AND B [Concomitant]
     Active Substance: DOCUSATE SODIUM\SENNOSIDES A AND B
     Indication: Product used for unknown indication
  9. ENOXAPARIN [Concomitant]
     Active Substance: ENOXAPARIN
     Indication: Product used for unknown indication
  10. METOPROLOL [Concomitant]
     Active Substance: METOPROLOL
     Indication: Product used for unknown indication
  11. MOVICOL [Concomitant]
     Active Substance: POLYETHYLENE GLYCOL 3350\POTASSIUM CHLORIDE\SODIUM BICARBONATE\SODIUM CHLORIDE
     Indication: Product used for unknown indication
  12. MOXONIDINE [Concomitant]
     Active Substance: MOXONIDINE
     Indication: Product used for unknown indication
  13. SLOW-K [Concomitant]
     Active Substance: POTASSIUM CHLORIDE
     Indication: Product used for unknown indication

REACTIONS (24)
  - Pleural effusion [Unknown]
  - Tachycardia [Not Recovered/Not Resolved]
  - Tachypnoea [Unknown]
  - Splenomegaly [Unknown]
  - Haemoglobin abnormal [Unknown]
  - White blood cell count abnormal [Not Recovered/Not Resolved]
  - Red blood cell count abnormal [Not Recovered/Not Resolved]
  - Haematocrit abnormal [Not Recovered/Not Resolved]
  - Mean cell haemoglobin concentration abnormal [Recovering/Resolving]
  - Red cell distribution width abnormal [Recovering/Resolving]
  - Neutrophil count abnormal [Not Recovered/Not Resolved]
  - Blood test abnormal [Unknown]
  - Monocyte count abnormal [Not Recovered/Not Resolved]
  - Lymphocyte count abnormal [Recovered/Resolved]
  - Blood potassium abnormal [Recovered/Resolved]
  - Blood chloride abnormal [Recovered/Resolved]
  - Blood bicarbonate abnormal [Unknown]
  - Alanine aminotransferase abnormal [Recovering/Resolving]
  - Blood alkaline phosphatase abnormal [Not Recovered/Not Resolved]
  - Gamma-glutamyltransferase abnormal [Unknown]
  - Blood albumin abnormal [Recovering/Resolving]
  - Globulin abnormal [Recovering/Resolving]
  - Drug level abnormal [Unknown]
  - Drug interaction [Unknown]

NARRATIVE: CASE EVENT DATE: 20150423
